FAERS Safety Report 5108209-9 (Version None)
Quarter: 2006Q3

REPORT INFORMATION
  Report Type: 
  Country: None (occurrence: None)
  Receive Date: 20060919
  Receipt Date: 20060913
  Transmission Date: 20061208
  Serious: Yes (Hospitalization)
  Sender: FDA-Public Use
  Company Number: US-SANOFI-SYNTHELABO-F01200601961

PATIENT
  Sex: Female

DRUGS (9)
  1. AVASTIN [Suspect]
     Route: 065
  2. OXALIPLATIN [Suspect]
     Indication: PANCREATIC CARCINOMA METASTATIC
     Route: 042
  3. HYDROCODONE BITARTRATE [Concomitant]
     Dosage: UNK
     Route: 065
  4. MORPHINE SULFATE INJ [Concomitant]
     Dosage: UNK
     Route: 065
  5. THYROID TAB [Concomitant]
  6. LEVOTHYROXINE SODIUM [Concomitant]
     Dosage: UNK
     Route: 065
  7. METOPROLOL TARTRATE [Concomitant]
     Dosage: UNK
     Route: 065
  8. RAMIPRIL [Concomitant]
     Dosage: UNK
     Route: 065
  9. GEMCITABINE [Suspect]
     Route: 065

REACTIONS (2)
  - CHOLANGITIS [None]
  - CHOLECYSTITIS [None]
